FAERS Safety Report 16882777 (Version 2)
Quarter: 2019Q4

REPORT INFORMATION
  Report Type: Spontaneous
  Country: IT (occurrence: IT)
  Receive Date: 20191003
  Receipt Date: 20191107
  Transmission Date: 20200122
  Serious: Yes (Hospitalization, Other)
  Sender: FDA-Public Use
  Company Number: IT-AUROBINDO-AUR-APL-2013-08886

PATIENT
  Age: 64 Year
  Sex: Male

DRUGS (2)
  1. AMOXICILLINA TABLETS 1G [Suspect]
     Active Substance: AMOXICILLIN
     Indication: PROPHYLAXIS
     Dosage: 5 DOSAGE FORM, TOTAL
     Route: 048
  2. AMOXICILLINA TABLETS 1G [Suspect]
     Active Substance: AMOXICILLIN
     Indication: DENTAL DISORDER PROPHYLAXIS
     Dosage: 1 DOSAGE FORM (1000 MILLIGRAM), (TAKEN A TOTAL OF 5 PILLS)
     Route: 048

REACTIONS (9)
  - Kounis syndrome [Recovered/Resolved]
  - Acute myocardial infarction [Recovered/Resolved]
  - Coronary artery disease [Recovered/Resolved]
  - Electrocardiogram abnormal [Recovered/Resolved]
  - Anaphylactic reaction [Recovered/Resolved]
  - Acute coronary syndrome [Recovered/Resolved]
  - Chest pain [Recovered/Resolved]
  - Abdominal pain upper [Recovered/Resolved]
  - Dyspnoea [Recovered/Resolved]
